FAERS Safety Report 10640604 (Version 3)
Quarter: 2015Q1

REPORT INFORMATION
  Report Type: Spontaneous
  Country: JP (occurrence: JP)
  Receive Date: 20141209
  Receipt Date: 20150108
  Transmission Date: 20150720
  Serious: Yes (Other)
  Sender: FDA-Public Use
  Company Number: JP-ASTELLAS-2014JP027390

PATIENT
  Age: 77 Year
  Sex: Male
  Weight: 51 kg

DRUGS (21)
  1. URIEF [Concomitant]
     Active Substance: SILODOSIN
     Indication: BENIGN PROSTATIC HYPERPLASIA
     Route: 048
     Dates: start: 20140715
  2. LAC-B [Concomitant]
     Active Substance: BIFIDOBACTERIUM SPP.
     Indication: PROSTATE CANCER
     Dosage: 3 PACKS, THRICE DAILY
     Route: 048
     Dates: start: 2014
  3. GONAX [Concomitant]
     Active Substance: DEGARELIX
     Indication: PROSTATE CANCER
     Route: 058
     Dates: start: 20140715, end: 20140715
  4. TRAMAL [Concomitant]
     Active Substance: TRAMADOL
     Indication: PROSTATE CANCER
     Route: 048
     Dates: start: 20140709
  5. LOPEMIN                            /00384302/ [Concomitant]
     Indication: METASTASES TO BONE
  6. NEXIUM [Concomitant]
     Active Substance: ESOMEPRAZOLE MAGNESIUM
     Indication: PROSTATE CANCER
     Dosage: UNK UNK, ONCE DAILY
     Route: 048
     Dates: start: 20140909
  7. TRAMAL [Concomitant]
     Active Substance: TRAMADOL
     Indication: METASTASES TO BONE
  8. OXYCONTIN [Concomitant]
     Active Substance: OXYCODONE HYDROCHLORIDE
     Indication: PROSTATE CANCER
     Route: 048
     Dates: start: 20141104
  9. VOLTAREN [Concomitant]
     Active Substance: DICLOFENAC SODIUM
     Indication: PROSTATE CANCER
     Dosage: 1 SUPPOSITORY PER ADMINISTRATION, DURING PAIN
     Route: 054
     Dates: start: 20140709
  10. CALONAL [Concomitant]
     Active Substance: ACETAMINOPHEN
     Indication: METASTASES TO BONE
  11. XTANDI [Suspect]
     Active Substance: ENZALUTAMIDE
     Indication: PROSTATE CANCER
     Route: 048
     Dates: start: 20141118
  12. LOPEMIN                            /00384302/ [Concomitant]
     Indication: PROSTATE CANCER
     Dosage: 1 DF, WHEN DIARRHEA
     Route: 048
     Dates: start: 20140812
  13. VOLTAREN [Concomitant]
     Active Substance: DICLOFENAC SODIUM
     Indication: METASTASES TO BONE
  14. DENOTAS [Concomitant]
     Active Substance: CALCIUM CARBONATE\CHOLECALCIFEROL\MAGNESIUM CARBONATE
     Indication: METASTASES TO BONE
     Route: 048
     Dates: start: 20140715
  15. NEXIUM [Concomitant]
     Active Substance: ESOMEPRAZOLE MAGNESIUM
     Indication: METASTASES TO BONE
  16. GONAX [Concomitant]
     Active Substance: DEGARELIX
     Indication: PROSTATE CANCER
     Route: 048
     Dates: start: 20140812
  17. OXYCONTIN [Concomitant]
     Active Substance: OXYCODONE HYDROCHLORIDE
     Indication: METASTASES TO BONE
  18. LAC-B [Concomitant]
     Active Substance: BIFIDOBACTERIUM SPP.
     Indication: METASTASES TO BONE
  19. CALONAL [Concomitant]
     Active Substance: ACETAMINOPHEN
     Indication: PROSTATE CANCER
     Route: 048
     Dates: start: 20140909
  20. ESTRACYT                           /00327002/ [Concomitant]
     Active Substance: ESTRAMUSTINE PHOSPHATE SODIUM
     Indication: PROSTATE CANCER
     Dosage: 156.7 MG, TWICE DAILY
     Route: 048
     Dates: start: 20140715, end: 20141117
  21. RANMARK [Concomitant]
     Active Substance: DENOSUMAB
     Indication: METASTASES TO BONE
     Dosage: UNK UNK, EVERY 4 WEEKS
     Route: 058
     Dates: start: 20140715

REACTIONS (1)
  - Hyperkalaemia [Recovered/Resolved]

NARRATIVE: CASE EVENT DATE: 20141128
